FAERS Safety Report 5050780-X (Version None)
Quarter: 2006Q3

REPORT INFORMATION
  Report Type: 
  Country: None (occurrence: None)
  Receive Date: 20060713
  Receipt Date: 20060703
  Transmission Date: 20061208
  Serious: Yes (Other)
  Sender: FDA-Public Use
  Company Number: CA-JNJFOC-20060700444

PATIENT
  Age: 38 Year
  Sex: Male

DRUGS (5)
  1. REMICADE [Suspect]
     Route: 042
  2. REMICADE [Suspect]
     Dosage: 3 INFUSIONS ON UNKNOWN DATES
     Route: 042
  3. REMICADE [Suspect]
     Indication: ANKYLOSING SPONDYLITIS
     Route: 042
  4. TYLENOL (CAPLET) [Concomitant]
     Indication: PREMEDICATION
  5. BENADRYL [Concomitant]
     Indication: PREMEDICATION

REACTIONS (8)
  - ARTHRALGIA [None]
  - BLOOD PRESSURE INCREASED [None]
  - CHEST PAIN [None]
  - DYSPNOEA [None]
  - INFUSION RELATED REACTION [None]
  - OEDEMA PERIPHERAL [None]
  - PAIN [None]
  - SPINAL FRACTURE [None]
